FAERS Safety Report 8473922 (Version 3)
Quarter: 2012Q4

REPORT INFORMATION
  Report Type: Report from Study
  Country: US (occurrence: US)
  Receive Date: 20120323
  Receipt Date: 20120913
  Transmission Date: 20130627
  Serious: Yes (Hospitalization)
  Sender: FDA-Public Use
  Company Number: US-JNJFOC-20120308024

PATIENT
  Age: 12 Year
  Sex: Male
  Weight: 33 kg

DRUGS (3)
  1. REMICADE [Suspect]
     Indication: CROHN^S DISEASE
     Route: 042
     Dates: start: 20070112, end: 20090609
  2. HUMIRA [Concomitant]
     Dates: start: 20090730
  3. METHOTREXATE [Concomitant]
     Dates: start: 20090730

REACTIONS (2)
  - Dehydration [Recovered/Resolved]
  - Gastroenteritis viral [Recovered/Resolved]
